FAERS Safety Report 4452325-1 (Version None)
Quarter: 2004Q3

REPORT INFORMATION
  Report Type: 
  Country: None (occurrence: None)
  Receive Date: 20040915
  Receipt Date: 20040903
  Transmission Date: 20050211
  Serious: Yes (Other)
  Sender: FDA-Public Use
  Company Number: ZANA001309

PATIENT
  Age: 32 Year
  Sex: Female

DRUGS (6)
  1. SIRDALUD (TIZANIDINE HYDROCHLORIDE) [Suspect]
     Indication: BIPOLAR DISORDER
     Dosage: 2-4 MG/DAY ORAL
     Route: 048
     Dates: start: 20040101, end: 20040220
  2. ENTUMIN (CLOTIAPINE) [Suspect]
     Indication: SLEEP DISORDER
     Dosage: 40-80 MG/DAY  ORAL
     Route: 048
     Dates: start: 20040113, end: 20040218
  3. LORAZEPAM [Suspect]
     Indication: BIPOLAR DISORDER
     Dosage: 4.5 MG/DAY ORAL
     Route: 048
     Dates: start: 20040101, end: 20040304
  4. SEROQUEL [Suspect]
     Indication: BIPOLAR DISORDER
     Dosage: 100 - 700 MG/DAY ORAL
     Route: 048
     Dates: start: 20040211, end: 20040219
  5. NOZINAN (LEVOMEPROMAZINE) [Suspect]
     Indication: DRUG USE FOR UNKNOWN INDICATION
     Dosage: 50 MG DAILY ORAL
     Route: 048
     Dates: start: 20040219, end: 20040219
  6. ORFIRIL (VALPROATE SODIUM) [Suspect]
     Indication: BIPOLAR DISORDER
     Dosage: 1000 MG/DAY ORAL
     Route: 048
     Dates: start: 20040115, end: 20040302

REACTIONS (9)
  - ATAXIA [None]
  - CONFUSIONAL STATE [None]
  - COORDINATION ABNORMAL [None]
  - DEPRESSIVE DELUSION [None]
  - DISEASE RECURRENCE [None]
  - DISORIENTATION [None]
  - DRUG INTERACTION [None]
  - GAIT DISTURBANCE [None]
  - SLEEP DISORDER [None]
